FAERS Safety Report 5604627-0 (Version None)
Quarter: 2008Q1

REPORT INFORMATION
  Report Type: 
  Country: None (occurrence: None)
  Receive Date: 20080124
  Receipt Date: 20080124
  Transmission Date: 20080703
  Serious: Yes (Other)
  Sender: FDA-Public Use
  Company Number: None

PATIENT
  Age: 54 Year
  Sex: Male
  Weight: 83.9154 kg

DRUGS (2)
  1. VYTORIN [Suspect]
     Indication: BLOOD TRIGLYCERIDES INCREASED
     Dosage: 10/20 MG 1 TABLET DAILY PO
     Route: 048
     Dates: start: 20070227, end: 20070515
  2. VYTORIN [Suspect]
     Indication: BLOOD CHOLESTEROL INCREASED
     Dosage: 10/20 MG 1 TABLET DAILY PO
     Route: 048
     Dates: start: 20061127, end: 20070226

REACTIONS (3)
  - ASTHENIA [None]
  - INSOMNIA [None]
  - MYALGIA [None]
